FAERS Safety Report 6567697-1 (Version None)
Quarter: 2010Q1

REPORT INFORMATION
  Report Type: 
  Country: None (occurrence: None)
  Receive Date: 20100203
  Receipt Date: 20100106
  Transmission Date: 20100710
  Serious: Yes (Other)
  Sender: FDA-Public Use
  Company Number: US-RANBAXY-2010RR-30504

PATIENT
  Age: 67 Year
  Sex: Female

DRUGS (6)
  1. FLECAINIDE ACETATE [Suspect]
     Dosage: 100 MG, BID
     Route: 048
  2. ASPIRIN [Concomitant]
     Dosage: 81 MG, QD
     Route: 048
  3. METOPROLOL SUCCINATE [Concomitant]
     Dosage: 50 MG, UNK
     Route: 048
  4. INSULIN ASPART [Concomitant]
     Dosage: UNK
  5. INSULIN GLARGINE [Concomitant]
     Dosage: 14 IU, QD
  6. LISINOPRIL [Concomitant]
     Dosage: 20 MG, UNK
     Route: 048

REACTIONS (1)
  - HYPONATRAEMIA [None]
